FAERS Safety Report 21278086 (Version 1)
Quarter: 2022Q3

REPORT INFORMATION
  Report Type: Spontaneous
  Country: US (occurrence: US)
  Receive Date: 20220831
  Receipt Date: 20220831
  Transmission Date: 20221026
  Serious: No
  Sender: FDA-Public Use
  Company Number: US-ABBVIE-22K-163-4273966-00

PATIENT
  Age: 40 Year
  Sex: Female

DRUGS (1)
  1. HUMIRA [Suspect]
     Active Substance: ADALIMUMAB
     Indication: Psoriatic arthropathy
     Route: 058

REACTIONS (10)
  - SARS-CoV-2 test positive [Unknown]
  - Head discomfort [Unknown]
  - Rhinorrhoea [Unknown]
  - Malaise [Unknown]
  - Fatigue [Unknown]
  - Chills [Unknown]
  - Nasal congestion [Unknown]
  - Diarrhoea [Unknown]
  - Pyrexia [Unknown]
  - Pyrexia [Unknown]

NARRATIVE: CASE EVENT DATE: 20220208
